FAERS Safety Report 21463032 (Version 1)
Quarter: 2022Q4

REPORT INFORMATION
  Report Type: Spontaneous
  Country: US (occurrence: US)
  Receive Date: 20221017
  Receipt Date: 20221017
  Transmission Date: 20230113
  Serious: No
  Sender: FDA-Public Use
  Company Number: US-SA-SAC20221012001143

PATIENT
  Age: 10 Year
  Sex: Female

DRUGS (1)
  1. DUPIXENT [Suspect]
     Active Substance: DUPILUMAB
     Indication: Dermatitis atopic
     Dosage: DOSE: 200MG/1.14ML PFS FREQUENCY: EVERY OTHER WEEK
     Route: 058
     Dates: start: 20220923

REACTIONS (2)
  - Pruritus [Unknown]
  - Rash [Unknown]
